FAERS Safety Report 19277297 (Version 1)
Quarter: 2021Q2

REPORT INFORMATION
  Report Type: Report from Study
  Country: None (occurrence: US)
  Receive Date: 20210519
  Receipt Date: 20210519
  Transmission Date: 20210717
  Serious: Yes (Other)
  Sender: FDA-Public Use
  Company Number: US-ABBVIE-21K-163-3911076-00

PATIENT
  Age: 55 Year
  Sex: Female

DRUGS (1)
  1. SKYRIZI [Suspect]
     Active Substance: RISANKIZUMAB-RZAA
     Indication: PSORIASIS
     Dosage: WEEK 4 THEN EVERY 12 WEEKS
     Route: 058
     Dates: start: 20210209, end: 2021

REACTIONS (1)
  - Mammoplasty [Unknown]

NARRATIVE: CASE EVENT DATE: 20210304
